FAERS Safety Report 9348525 (Version 1)
Quarter: 2013Q2

REPORT INFORMATION
  Report Type: Spontaneous
  Country: US (occurrence: None)
  Receive Date: 20130613
  Receipt Date: 20130613
  Transmission Date: 20140414
  Serious: No
  Sender: FDA-Public Use
  Company Number: None

PATIENT
  Age: 72 Year
  Sex: Female
  Weight: 53.98 kg

DRUGS (1)
  1. PRIMIDONE [Suspect]
     Indication: TREMOR
     Dosage: PILL
     Dates: start: 201209

REACTIONS (2)
  - Gastritis [None]
  - Alopecia [None]
